FAERS Safety Report 8084871-6 (Version None)
Quarter: 2012Q1

REPORT INFORMATION
  Report Type: 
  Country: None (occurrence: None)
  Receive Date: 20120128
  Receipt Date: 20110317
  Transmission Date: 20120608
  Serious: No
  Sender: FDA-Public Use
  Company Number: US-ABBOTT-11P-163-0712841-00

PATIENT
  Age: 65 Year
  Sex: Female

DRUGS (5)
  1. IMODIUM [Concomitant]
     Indication: DIARRHOEA
     Dosage: OTC, AS NEEDED
  2. ALBUTEROL [Concomitant]
     Indication: ASTHMA
  3. ACETAMINOPHEN [Concomitant]
     Indication: HEADACHE
     Dosage: OTC, AS NEEDED
  4. HUMIRA [Suspect]
     Indication: CROHN'S DISEASE
     Route: 058
     Dates: start: 20100601
  5. PENTASA [Concomitant]
     Indication: CROHN'S DISEASE
     Dosage: 2 TABS QID

REACTIONS (3)
  - CATARACT [None]
  - EYE DISORDER [None]
  - HEPATITIS C [None]
